FAERS Safety Report 15667114 (Version 5)
Quarter: 2018Q4

REPORT INFORMATION
  Report Type: Report from Study
  Country: US (occurrence: US)
  Receive Date: 20181128
  Receipt Date: 20181228
  Transmission Date: 20190205
  Serious: Yes (Hospitalization)
  Sender: FDA-Public Use
  Company Number: US-ACTELION-A-NJ2018-182699

PATIENT
  Age: 58 Year
  Sex: Female
  Weight: 73.92 kg

DRUGS (5)
  1. VELETRI [Suspect]
     Active Substance: EPOPROSTENOL
     Indication: PULMONARY ARTERIAL HYPERTENSION
     Dosage: 11 NG/KG, PER MIN
     Route: 042
  2. NIFEDIPINE. [Concomitant]
     Active Substance: NIFEDIPINE
  3. VELETRI [Suspect]
     Active Substance: EPOPROSTENOL
     Dosage: 13 NG/KG, PER MIN
     Route: 042
  4. SILDENAFIL. [Concomitant]
     Active Substance: SILDENAFIL
  5. VELETRI [Suspect]
     Active Substance: EPOPROSTENOL
     Dosage: 8 NG/KG, PER MIN
     Route: 042
     Dates: start: 20180926

REACTIONS (20)
  - Clostridium difficile colitis [Recovered/Resolved]
  - Pyrexia [Unknown]
  - Pain [Recovering/Resolving]
  - Insomnia [Unknown]
  - Thrombocytopenia [Not Recovered/Not Resolved]
  - Oedema peripheral [Not Recovered/Not Resolved]
  - Haemodialysis [Unknown]
  - Encephalopathy [Recovered/Resolved]
  - Hydrothorax [Not Recovered/Not Resolved]
  - Rales [Unknown]
  - Hepatic failure [Not Recovered/Not Resolved]
  - Back pain [Unknown]
  - Flushing [Unknown]
  - Nausea [Unknown]
  - Renal failure [Not Recovered/Not Resolved]
  - Concomitant disease aggravated [Not Recovered/Not Resolved]
  - Bacteraemia [Recovered/Resolved]
  - Vomiting [Unknown]
  - Pain in jaw [Recovering/Resolving]
  - Headache [Unknown]
